FAERS Safety Report 19304841 (Version 6)
Quarter: 2021Q3

REPORT INFORMATION
  Report Type: Spontaneous
  Country: CA (occurrence: CA)
  Receive Date: 20210526
  Receipt Date: 20210922
  Transmission Date: 20211014
  Serious: Yes (Other)
  Sender: FDA-Public Use
  Company Number: CA-CELLTRION INC.-2020CA029612

PATIENT

DRUGS (16)
  1. INFLECTRA [Suspect]
     Active Substance: INFLIXIMAB-DYYB
     Dosage: 10 MG/KG EVERY (Q) 0 AND 2 WEEKS THEN 5 MG/KG AT WEEK 6 THEN EVERY 6 WEEKS
     Route: 042
     Dates: start: 20201106
  2. INFLECTRA [Suspect]
     Active Substance: INFLIXIMAB-DYYB
     Dosage: 10 MG/KG (ASAP THEN EVERY 4 WEEKS)
     Route: 042
     Dates: start: 20210209
  3. INFLECTRA [Suspect]
     Active Substance: INFLIXIMAB-DYYB
     Dosage: 10 MG/KG (ASAP THEN EVERY 4 WEEKS)
     Route: 042
     Dates: start: 20210311
  4. INFLECTRA [Suspect]
     Active Substance: INFLIXIMAB-DYYB
     Dosage: 10 MG/KG (ASAP THEN EVERY 4 WEEKS)
     Route: 042
     Dates: start: 20210512
  5. INFLECTRA [Suspect]
     Active Substance: INFLIXIMAB-DYYB
     Dosage: 15 MG/KG, WEEK 0, 2, 6. AND THEN Q 4 WEEKS
     Route: 042
     Dates: start: 20210525
  6. INFLECTRA [Suspect]
     Active Substance: INFLIXIMAB-DYYB
     Dosage: 15 MG/KG, WEEK 0, 2, 6. AND THEN Q 4 WEEKS
     Route: 042
     Dates: start: 20210820
  7. INFLECTRA [Suspect]
     Active Substance: INFLIXIMAB-DYYB
     Dosage: 10 MG/KG (ASAP, ONE DOSE AS SOON AS POSSIBLE THEN EVERY 4 WEEKS)
     Route: 042
     Dates: start: 20201214, end: 20210409
  8. INFLECTRA [Suspect]
     Active Substance: INFLIXIMAB-DYYB
     Dosage: 15 MG/KG, WEEK 0, 2, 6. AND THEN Q 4 WEEKS
     Route: 042
     Dates: start: 20210512
  9. INFLECTRA [Suspect]
     Active Substance: INFLIXIMAB-DYYB
     Indication: COLITIS ULCERATIVE
     Dosage: 10 MG/KG EVERY (Q) 0 AND 2 WEEKS THEN 5 MG/KG AT WEEK 6 THEN EVERY 6 WEEKS
     Route: 042
     Dates: start: 20200925
  10. INFLECTRA [Suspect]
     Active Substance: INFLIXIMAB-DYYB
     Dosage: 10 MG/KG EVERY 8 WEEKS, 10MG/KG WEEK 0 AND 2, THEN 5MG/KG WEEK 6 THEN EVERY 6 WEEKS
     Route: 042
     Dates: start: 20200925, end: 20201106
  11. INFLECTRA [Suspect]
     Active Substance: INFLIXIMAB-DYYB
     Dosage: 10 MG/KG EVERY (Q) 0 AND 2 WEEKS THEN 5 MG/KG AT WEEK 6 THEN EVERY 6 WEEKS
     Route: 042
     Dates: start: 20201017
  12. PREDNISONE. [Concomitant]
     Active Substance: PREDNISONE
     Dosage: 1 DF
     Route: 065
  13. INFLECTRA [Suspect]
     Active Substance: INFLIXIMAB-DYYB
     Dosage: 10 MG/KG (ASAP THEN EVERY 4 WEEKS)
     Route: 042
     Dates: start: 20210111
  14. INFLECTRA [Suspect]
     Active Substance: INFLIXIMAB-DYYB
     Dosage: 10 MG/KG (ASAP THEN EVERY 4 WEEKS)
     Route: 042
     Dates: start: 20210409
  15. INFLECTRA [Suspect]
     Active Substance: INFLIXIMAB-DYYB
     Dosage: 15 MG/KG, WEEK 0, 2, 6. AND THEN Q 4 WEEKS
     Route: 042
     Dates: start: 20210719
  16. INFLECTRA [Suspect]
     Active Substance: INFLIXIMAB-DYYB
     Dosage: 15 MG/KG, WEEK 0, 2, 6. AND THEN Q 4 WEEKS
     Route: 042
     Dates: start: 20210911

REACTIONS (10)
  - Condition aggravated [Recovered/Resolved]
  - Off label use [Unknown]
  - Pain [Unknown]
  - Off label use [Unknown]
  - Maternal exposure during pregnancy [Unknown]
  - Drug level below therapeutic [Unknown]
  - Faecal calprotectin increased [Unknown]
  - Heart rate increased [Unknown]
  - Impaired healing [Unknown]
  - Weight fluctuation [Not Recovered/Not Resolved]

NARRATIVE: CASE EVENT DATE: 2020
